FAERS Safety Report 6265231-7 (Version None)
Quarter: 2009Q3

REPORT INFORMATION
  Report Type: 
  Country: None (occurrence: None)
  Receive Date: 20090709
  Receipt Date: 20090709
  Transmission Date: 20100115
  Serious: Yes (Other)
  Sender: FDA-Public Use
  Company Number: None

PATIENT
  Sex: Female
  Weight: 52.6173 kg

DRUGS (1)
  1. AVELOX [Suspect]
     Indication: OTITIS MEDIA
     Dates: start: 20090623, end: 20090627

REACTIONS (3)
  - LIP SWELLING [None]
  - PRURITUS GENERALISED [None]
  - THROAT IRRITATION [None]
